FAERS Safety Report 15831514 (Version 1)
Quarter: 2019Q1

REPORT INFORMATION
  Report Type: Spontaneous
  Country: US (occurrence: US)
  Receive Date: 20190114
  Receipt Date: 20190114
  Transmission Date: 20190417
  Serious: Yes (Hospitalization)
  Sender: FDA-Public Use
  Company Number: None

PATIENT
  Age: 63 Year
  Sex: Male
  Weight: 84 kg

DRUGS (1)
  1. CIPROFLOXACIN. [Suspect]
     Active Substance: CIPROFLOXACIN
     Indication: URINARY TRACT INFECTION
     Route: 048
     Dates: start: 20181022, end: 20181030

REACTIONS (11)
  - Paranoia [None]
  - Acute kidney injury [None]
  - Disorientation [None]
  - Urine output decreased [None]
  - Delirium [None]
  - Blood creatinine increased [None]
  - Tubulointerstitial nephritis [None]
  - Blood lactic acid increased [None]
  - Urinary casts present [None]
  - Eosinophils urine present [None]
  - Renal impairment [None]

NARRATIVE: CASE EVENT DATE: 20181024
